FAERS Safety Report 8855082 (Version 1)
Quarter: 2012Q4

REPORT INFORMATION
  Report Type: Report from Study
  Country: GB (occurrence: NL)
  Receive Date: 20121023
  Receipt Date: 20121023
  Transmission Date: 20130627
  Serious: Yes (Hospitalization, Disabling)
  Sender: FDA-Public Use
  Company Number: NL-ELI_LILLY_AND_COMPANY-NL201210004199

PATIENT
  Age: 57 Year
  Sex: Female
  Weight: 60 kg

DRUGS (5)
  1. PEMETREXED [Suspect]
     Indication: NON-SMALL CELL LUNG CANCER
     Dosage: 824 UNK, UNK
     Route: 042
     Dates: start: 20121003
  2. UNSPECIFIED INGREDIENT [Suspect]
     Indication: NON-SMALL CELL LUNG CANCER
     Dosage: UNK UNK, qd
     Route: 048
     Dates: start: 20121002
  3. BEVACIZUMAB [Suspect]
     Indication: NON-SMALL CELL LUNG CANCER
     Dosage: UNK UNK, other
     Route: 042
     Dates: start: 20121003
  4. CISPLATIN [Suspect]
     Indication: NON-SMALL CELL LUNG CANCER
     Dosage: UNK UNK, other
     Route: 042
     Dates: start: 20121003
  5. PARACETAMOL [Concomitant]
     Indication: MUSCULOSKELETAL PAIN
     Dosage: 1000 mg, UNK
     Route: 048
     Dates: start: 20120608

REACTIONS (1)
  - Dyspnoea [Not Recovered/Not Resolved]
